FAERS Safety Report 4369084-3 (Version None)
Quarter: 2004Q2

REPORT INFORMATION
  Report Type: 
  Country: None (occurrence: None)
  Receive Date: 20040528
  Receipt Date: 20040517
  Transmission Date: 20050107
  Serious: Yes (Hospitalization, Other)
  Sender: FDA-Public Use
  Company Number: 2004214227CA

PATIENT
  Age: 70 Year
  Sex: Male

DRUGS (9)
  1. MEDROL [Suspect]
     Indication: ASTHMA
     Dosage: 4 MG, TID, ORAL
     Route: 048
     Dates: start: 20000101
  2. ATROVENT [Concomitant]
  3. ADVAIR INHALER [Concomitant]
  4. QVAR (BECLOMETASONE DIPROPIONATE) INHALER [Concomitant]
  5. VENTOLIN (SALBUTAMOL) INHALER [Concomitant]
  6. OXYGEN (OXYGEN) [Concomitant]
  7. DILTIAZEM HYDROCHLORIDE [Concomitant]
  8. OXTRIPHYLLINE (CHOLINE THEOPHYLLINATE) [Concomitant]
  9. ASTHMA INHALER [Concomitant]

REACTIONS (6)
  - DRUG DEPENDENCE [None]
  - DRUG INEFFECTIVE [None]
  - DRUG LEVEL INCREASED [None]
  - HERNIA [None]
  - JOINT SWELLING [None]
  - PNEUMOTHORAX [None]
